FAERS Safety Report 8829859 (Version 2)
Quarter: 2012Q4

REPORT INFORMATION
  Report Type: 
  Country: JP (occurrence: JP)
  Receive Date: 20121008
  Receipt Date: 20121102
  Transmission Date: 20130627
  Serious: Yes (Death, Other)
  Sender: FDA-Public Use
  Company Number: JP-PFIZER INC-2012224755

PATIENT
  Age: 79 Year
  Sex: Female

DRUGS (13)
  1. SILDENAFIL CITRATE [Suspect]
     Indication: ASSOCIATED WITH (APAH)
     Dosage: UNK
     Route: 048
     Dates: start: 20120428, end: 20120531
  2. SILDENAFIL CITRATE [Suspect]
     Indication: COLLAGEN DISORDER
  3. BERAPROST SODIUM [Suspect]
     Indication: PULMONARY ARTERIAL HYPERTENSION
     Dosage: UNK
     Route: 048
     Dates: start: 20120503, end: 20120518
  4. BERAPROST SODIUM [Suspect]
     Indication: COLLAGEN DISORDER
  5. AMBRISENTAN [Suspect]
     Indication: ASSOCIATED WITH (APAH)
     Dosage: UNK
     Route: 048
     Dates: start: 20120511, end: 20120514
  6. AMBRISENTAN [Suspect]
     Indication: COLLAGEN DISORDER
  7. RENIVACE [Concomitant]
     Indication: CARDIAC FAILURE CHRONIC
     Dosage: 1.25 mg, 1x/day
     Route: 048
     Dates: start: 20120411, end: 20120514
  8. ARTIST [Concomitant]
     Indication: CARDIAC FAILURE CHRONIC
     Dosage: 1.25 mg, 1x/day
     Route: 048
     Dates: start: 20120411, end: 20120514
  9. TAKEPRON [Concomitant]
     Indication: REFLUX OESOPHAGITIS
     Dosage: 15 mg, 1x/day
     Route: 048
     Dates: start: 20120411, end: 20120611
  10. WARFARIN [Concomitant]
     Indication: ATRIAL FIBRILLATION
     Dosage: 2.5 mg, 1x/day
     Route: 048
     Dates: start: 20120411, end: 20120611
  11. SEROQUEL [Concomitant]
     Indication: DELIRIUM
     Dosage: 25 mg, 1x/day
     Route: 048
     Dates: start: 20120413, end: 20120611
  12. AMOBAN [Concomitant]
     Indication: INSOMNIA
     Dosage: 7.5 mg, 1x/day
     Route: 048
     Dates: start: 20120411, end: 20120611
  13. MAGNESIUM OXIDE [Concomitant]
     Indication: CONSTIPATION
     Dosage: UNK
     Route: 048
     Dates: start: 20120411, end: 20120611

REACTIONS (3)
  - Circulatory collapse [Fatal]
  - Pulmonary hypertension [Fatal]
  - Anaemia [Recovered/Resolved]
